FAERS Safety Report 5909337-8 (Version None)
Quarter: 2008Q4

REPORT INFORMATION
  Report Type: 
  Country: None (occurrence: None)
  Receive Date: 20081006
  Receipt Date: 20080922
  Transmission Date: 20090506
  Serious: Yes (Life-Threatening)
  Sender: FDA-Public Use
  Company Number: JP-ABBOTT-08P-087-0479986-00

PATIENT
  Age: 79 Year
  Sex: Male

DRUGS (5)
  1. LEUPROLIDE ACETATE [Suspect]
     Indication: PROSTATE CANCER STAGE I
     Dates: start: 20050309, end: 20060112
  2. LEUPROLIDE ACETATE [Suspect]
     Route: 058
     Dates: start: 20060209
  3. BICALUTAMIDE [Concomitant]
     Indication: PROSTATE CANCER STAGE I
     Route: 048
     Dates: end: 20060802
  4. BICALUTAMIDE [Concomitant]
     Route: 048
     Dates: start: 20070705, end: 20070926
  5. CETRAXATE HYDROCHLORIDE [Concomitant]
     Indication: GASTRITIS PROPHYLAXIS
     Route: 048
     Dates: end: 20060802

REACTIONS (1)
  - LARGE INTESTINE CARCINOMA [None]
